FAERS Safety Report 5044619-6 (Version None)
Quarter: 2006Q3

REPORT INFORMATION
  Report Type: 
  Country: None (occurrence: None)
  Receive Date: 20060706
  Receipt Date: 20060607
  Transmission Date: 20061208
  Serious: Yes (Life-Threatening, Hospitalization, Other)
  Sender: FDA-Public Use
  Company Number: FR-BRISTOL-MYERS SQUIBB COMPANY-13406780

PATIENT
  Age: 48 Year
  Sex: Female
  Weight: 53 kg

DRUGS (1)
  1. ABILIFY [Suspect]
     Indication: PSYCHOTIC DISORDER
     Dosage: DOSAGE: INITIATED AT 15 MG DAILY ON 10-OCT-2005; INCREASED TO 30 MG DAILY ON 27-MAR-2006
     Route: 048
     Dates: start: 20051010

REACTIONS (5)
  - ASTHENIA [None]
  - DIABETIC HYPERGLYCAEMIC COMA [None]
  - POLYDIPSIA [None]
  - POLYURIA [None]
  - WEIGHT DECREASED [None]
